FAERS Safety Report 7403730-2 (Version None)
Quarter: 2011Q2

REPORT INFORMATION
  Report Type: 
  Country: None (occurrence: None)
  Receive Date: 20110408
  Receipt Date: 20110401
  Transmission Date: 20111010
  Serious: Yes (Other)
  Sender: FDA-Public Use
  Company Number: US-ABBOTT-11P-163-0716240-00

PATIENT
  Sex: Female
  Weight: 49.032 kg

DRUGS (2)
  1. HUMIRA [Suspect]
     Indication: CROHN'S DISEASE
     Route: 058
     Dates: start: 20110101, end: 20110301
  2. ALBUTEROL [Concomitant]
     Indication: ASTHMA

REACTIONS (8)
  - HEADACHE [None]
  - DYSPNOEA [None]
  - RASH [None]
  - MOBILITY DECREASED [None]
  - VISUAL IMPAIRMENT [None]
  - COUGH [None]
  - EYE INFECTION [None]
  - MUSCULOSKELETAL DISORDER [None]
